FAERS Safety Report 8135021-9 (Version None)
Quarter: 2012Q1

REPORT INFORMATION
  Report Type: 
  Country: None (occurrence: None)
  Receive Date: 20120214
  Receipt Date: 20120210
  Transmission Date: 20120608
  Serious: Yes (Hospitalization)
  Sender: FDA-Public Use
  Company Number: US-JNJFOC-20120205904

PATIENT
  Sex: Female
  Weight: 90.72 kg

DRUGS (6)
  1. LEVAQUIN [Suspect]
     Route: 048
     Dates: start: 20120101, end: 20120121
  2. LEVAQUIN [Suspect]
     Indication: PNEUMONIA
     Route: 048
     Dates: start: 20120105, end: 20120101
  3. ADVAIR DISKUS 100/50 [Concomitant]
     Indication: ASTHMA
     Route: 065
  4. SINGULAIR [Concomitant]
     Indication: ASTHMA
     Route: 065
     Dates: start: 20060101
  5. ALBUTEROL [Concomitant]
     Indication: ASTHMA
     Route: 065
     Dates: start: 20060101
  6. ATROVENT [Concomitant]
     Indication: ASTHMA
     Route: 065
     Dates: start: 20120101

REACTIONS (4)
  - ABNORMAL LOSS OF WEIGHT [None]
  - HALLUCINATION [None]
  - PYREXIA [None]
  - OPIATES POSITIVE [None]
